FAERS Safety Report 5075597-1 (Version None)
Quarter: 2006Q3

REPORT INFORMATION
  Report Type: 
  Country: None (occurrence: None)
  Receive Date: 20060809
  Receipt Date: 20060726
  Transmission Date: 20061208
  Serious: Yes (Other)
  Sender: FDA-Public Use
  Company Number: US-ROCHE-457178

PATIENT
  Age: 58 Year
  Sex: Male
  Weight: 71.2 kg

DRUGS (3)
  1. PEG-INTERFERON ALFA 2A (RO 25-8310) [Suspect]
     Dosage: DOSE FORM: INJECTABLE SOLUTION
     Route: 058
     Dates: start: 20060522, end: 20060703
  2. RIBAVIRIN [Suspect]
     Route: 048
     Dates: start: 20060522, end: 20060710
  3. ESOMEPRAZOLE MAGNESIUM [Concomitant]
     Route: 048
     Dates: start: 20020415

REACTIONS (10)
  - ABDOMINAL DISTENSION [None]
  - ASCITES [None]
  - HEPATIC LESION [None]
  - HEPATIC NEOPLASM MALIGNANT [None]
  - LYMPHADENOPATHY [None]
  - MESENTERIC VEIN THROMBOSIS [None]
  - PORTAL HYPERTENSION [None]
  - PORTAL VEIN THROMBOSIS [None]
  - SPLENIC VEIN THROMBOSIS [None]
  - THROMBOSIS [None]
